FAERS Safety Report 8362502-5 (Version None)
Quarter: 2012Q2

REPORT INFORMATION
  Report Type: 
  Country: None (occurrence: None)
  Receive Date: 20120514
  Receipt Date: 20120501
  Transmission Date: 20120825
  Serious: Yes (Other)
  Sender: FDA-Public Use
  Company Number: 2012P1019277

PATIENT
  Age: 63 Year
  Sex: Female
  Weight: 61.2356 kg

DRUGS (8)
  1. CYCLOBENZAPRINE HCL [Suspect]
     Indication: NECK PAIN
     Dosage: PRN, PO
     Route: 048
     Dates: start: 20120417
  2. VENTOLIN [Concomitant]
  3. NASACORT AQ [Concomitant]
  4. SINGULAIR [Concomitant]
  5. DICLOFENAC SODIUM [Suspect]
     Dates: start: 20120417, end: 20120428
  6. ZYRTEC [Concomitant]
  7. KLONOPIN [Concomitant]
  8. WELLBUTRIN [Concomitant]

REACTIONS (7)
  - OROPHARYNGEAL PAIN [None]
  - FATIGUE [None]
  - NASAL CONGESTION [None]
  - LARYNGITIS [None]
  - MALAISE [None]
  - ASTHMA [None]
  - SEASONAL ALLERGY [None]
